FAERS Safety Report 19455871 (Version 1)
Quarter: 2021Q2

REPORT INFORMATION
  Report Type: Report from Study
  Country: FR (occurrence: FR)
  Receive Date: 20210624
  Receipt Date: 20210624
  Transmission Date: 20210717
  Serious: Yes (Hospitalization)
  Sender: FDA-Public Use
  Company Number: FR-GILEAD-2021-0537371

PATIENT
  Sex: Female
  Weight: 51 kg

DRUGS (2)
  1. SACITUZUMAB GOVITECAN. [Suspect]
     Active Substance: SACITUZUMAB GOVITECAN
     Indication: TRANSITIONAL CELL CARCINOMA METASTATIC
     Dosage: 10 MG/KG ON DAYS 1 AND 8 OF A 21 DAY CYCLE
     Route: 042
     Dates: start: 20210611
  2. PEMBROLIZUMAB. [Suspect]
     Active Substance: PEMBROLIZUMAB
     Indication: TRANSITIONAL CELL CARCINOMA METASTATIC
     Dosage: 200 MG ON CND1
     Route: 042
     Dates: start: 20210611

REACTIONS (1)
  - Vaginal fistula [Not Recovered/Not Resolved]

NARRATIVE: CASE EVENT DATE: 20210619
